FAERS Safety Report 9832153 (Version 2)
Quarter: 2014Q3

REPORT INFORMATION
  Report Type: Spontaneous
  Country: GB (occurrence: GB)
  Receive Date: 20140121
  Receipt Date: 20140909
  Transmission Date: 20150326
  Serious: Yes (Other)
  Sender: FDA-Public Use
  Company Number: GB-SA-2014SA004789

PATIENT
  Age: 60 Year
  Sex: Male

DRUGS (2)
  1. RIFAMPICIN [Suspect]
     Active Substance: RIFAMPIN
     Indication: BACTERIAL DISEASE CARRIER
     Route: 065
  2. CARBIDOPA/LEVODOPA [Suspect]
     Active Substance: CARBIDOPA\LEVODOPA
     Indication: PRODUCT USED FOR UNKNOWN INDICATION
     Route: 065
     Dates: start: 20110208

REACTIONS (6)
  - Catheter site discharge [Unknown]
  - Staphylococcal infection [Not Recovered/Not Resolved]
  - On and off phenomenon [Unknown]
  - Stoma site reaction [Unknown]
  - Excessive granulation tissue [Unknown]
  - Parkinson^s disease [Recovered/Resolved]
